FAERS Safety Report 21997921 (Version 3)
Quarter: 2023Q2

REPORT INFORMATION
  Report Type: Spontaneous
  Country: US (occurrence: US)
  Receive Date: 20230216
  Receipt Date: 20230418
  Transmission Date: 20230722
  Serious: Yes (Hospitalization, Other)
  Sender: FDA-Public Use
  Company Number: US-TAKEDA-2023TUS015574

PATIENT
  Age: 42 Year
  Sex: Male
  Weight: 78 kg

DRUGS (8)
  1. GAMMAGARD LIQUID [Suspect]
     Active Substance: HUMAN IMMUNOGLOBULIN G
     Indication: Hypogammaglobulinaemia
     Dosage: 30 GRAM
     Route: 042
     Dates: start: 20230201
  2. GAMMAGARD LIQUID [Suspect]
     Active Substance: HUMAN IMMUNOGLOBULIN G
     Indication: Second primary malignancy
     Dosage: 30 GRAM
     Route: 042
     Dates: start: 20230201, end: 20230201
  3. GAMMAGARD LIQUID [Suspect]
     Active Substance: HUMAN IMMUNOGLOBULIN G
     Indication: B-cell lymphoma recurrent
  4. BETAMETHASONE [Concomitant]
     Active Substance: BETAMETHASONE
     Indication: Graft versus host disease
     Dosage: UNK
     Route: 065
  5. FISH OIL [Concomitant]
     Active Substance: FISH OIL
     Indication: Supplementation therapy
     Route: 065
  6. RESTASIS [Concomitant]
     Active Substance: CYCLOSPORINE
     Indication: Inflammation
     Dosage: 1 GTT DROPS, BID
     Route: 065
  7. FAMOTIDINE [Concomitant]
     Active Substance: FAMOTIDINE
     Indication: Dyspepsia
     Dosage: 1 DOSAGE FORM, BID
     Route: 065
  8. IBRUTINIB [Concomitant]
     Active Substance: IBRUTINIB
     Dosage: 1 DOSAGE FORM, QD
     Route: 048

REACTIONS (10)
  - Transfusion-related acute lung injury [Not Recovered/Not Resolved]
  - Tachypnoea [Unknown]
  - Hypercapnia [Unknown]
  - Mental disorder [Unknown]
  - Septic shock [Unknown]
  - Hypoxia [Unknown]
  - Dyspnoea [Unknown]
  - Hypotension [Unknown]
  - Blood beta-D-glucan positive [Unknown]
  - Hypoglycaemia [Recovering/Resolving]

NARRATIVE: CASE EVENT DATE: 20230201
